FAERS Safety Report 11832924 (Version 6)
Quarter: 2018Q2

REPORT INFORMATION
  Report Type: Spontaneous
  Country: BR (occurrence: BR)
  Receive Date: 20151214
  Receipt Date: 20180629
  Transmission Date: 20180711
  Serious: Yes (Hospitalization, Other)
  Sender: FDA-Public Use
  Company Number: BR-ELI_LILLY_AND_COMPANY-BR201511000859

PATIENT
  Age: 70 Year
  Sex: Female
  Weight: 75 kg

DRUGS (11)
  1. EFFIENT [Suspect]
     Active Substance: PRASUGREL HYDROCHLORIDE
     Dosage: UNK UNK, UNKNOWN
     Route: 048
     Dates: end: 20170418
  2. OMEPRAZOL                          /00661201/ [Concomitant]
     Active Substance: OMEPRAZOLE
     Indication: PRODUCT USED FOR UNKNOWN INDICATION
     Dosage: 20 MG, QD
  3. EFFIENT [Suspect]
     Active Substance: PRASUGREL HYDROCHLORIDE
     Dosage: 10 MG, DAILY
     Route: 048
     Dates: end: 20180614
  4. INDAPAMIDA [Concomitant]
     Active Substance: INDAPAMIDE
     Indication: PRODUCT USED FOR UNKNOWN INDICATION
     Dosage: 1 DF, DAILY
  5. PLASIL                             /00041901/ [Concomitant]
     Active Substance: METOCLOPRAMIDE
  6. FLORENT [Concomitant]
     Active Substance: SACCHAROMYCES CEREVISIAE
  7. ASPIRINA PREVENT [Concomitant]
     Active Substance: ASPIRIN
     Indication: PRODUCT USED FOR UNKNOWN INDICATION
     Dosage: 100 MG, QD
  8. PROLOPA [Concomitant]
     Active Substance: BENSERAZIDE\LEVODOPA
     Indication: TREMOR
     Dosage: UNK
     Dates: start: 2017
  9. EFFIENT [Suspect]
     Active Substance: PRASUGREL HYDROCHLORIDE
     Indication: ANTIPLATELET THERAPY
     Dosage: 10 MG, QD
     Route: 065
     Dates: start: 20131014, end: 20161219
  10. XIGDUO XR [Concomitant]
     Active Substance: DAPAGLIFLOZIN PROPANEDIOL\METFORMIN HYDROCHLORIDE
     Indication: PRODUCT USED FOR UNKNOWN INDICATION
  11. ATORVASTATINA                      /01326102/ [Concomitant]
     Indication: PRODUCT USED FOR UNKNOWN INDICATION
     Dosage: 20 MG, DAILY

REACTIONS (16)
  - Back pain [Not Recovered/Not Resolved]
  - Fatigue [Not Recovered/Not Resolved]
  - Pain in extremity [Not Recovered/Not Resolved]
  - Oedema peripheral [Recovered/Resolved]
  - Stent placement [Recovered/Resolved]
  - Weight increased [Not Recovered/Not Resolved]
  - Anxiety [Not Recovered/Not Resolved]
  - Dyspnoea [Not Recovered/Not Resolved]
  - Malaise [Recovered/Resolved]
  - Cardiac function test abnormal [Not Recovered/Not Resolved]
  - Viral infection [Recovered/Resolved]
  - Drug dose omission [Recovered/Resolved]
  - Tremor [Not Recovered/Not Resolved]
  - Diabetes mellitus [Not Recovered/Not Resolved]
  - Chest pain [Recovering/Resolving]
  - Drug dose omission [Not Recovered/Not Resolved]

NARRATIVE: CASE EVENT DATE: 201412
